FAERS Safety Report 20371624 (Version 3)
Quarter: 2022Q4

REPORT INFORMATION
  Report Type: Spontaneous
  Country: US (occurrence: US)
  Receive Date: 20220124
  Receipt Date: 20221005
  Transmission Date: 20230113
  Serious: Yes (Other)
  Sender: FDA-Public Use
  Company Number: US-PFIZER INC-2015240081

PATIENT
  Age: 89 Year
  Sex: Female
  Weight: 90.72 kg

DRUGS (5)
  1. PREMARIN [Suspect]
     Active Substance: ESTROGENS, CONJUGATED
     Indication: Vulvovaginal dryness
     Dosage: UNK, 3 TIMES A WEEK AS NEEDED 90 DAYS
     Route: 061
  2. PREMARIN [Suspect]
     Active Substance: ESTROGENS, CONJUGATED
     Indication: Infection
  3. LOSARTAN POTASSIUM [Concomitant]
     Active Substance: LOSARTAN POTASSIUM
     Indication: Hypertension
     Dosage: 50 MG, UNK
  4. CHLORTHALIDONE [Concomitant]
     Active Substance: CHLORTHALIDONE
     Indication: Hypertension
     Dosage: 25 MG, UNK
  5. IRON [Concomitant]
     Active Substance: IRON
     Indication: Internal haemorrhage
     Dosage: UNK

REACTIONS (6)
  - Urinary bladder suspension [Unknown]
  - Hypoacusis [Unknown]
  - Memory impairment [Unknown]
  - Visual impairment [Unknown]
  - Off label use [Unknown]
  - Off label use [Unknown]
